FAERS Safety Report 11646457 (Version 1)
Quarter: 2015Q4

REPORT INFORMATION
  Report Type: Spontaneous
  Country: US (occurrence: US)
  Receive Date: 20151020
  Receipt Date: 20151020
  Transmission Date: 20160304
  Serious: No
  Sender: FDA-Public Use
  Company Number: US-ROCHE-ITM201505IM016348

PATIENT
  Sex: Male

DRUGS (2)
  1. ESBRIET [Suspect]
     Active Substance: PIRFENIDONE
     Dosage: 2 CAPSULES 1ST AND 2ND DOSE AND ONE CAPSULE IN 3RD DOSE.
     Route: 048
  2. ESBRIET [Suspect]
     Active Substance: PIRFENIDONE
     Indication: IDIOPATHIC PULMONARY FIBROSIS
     Dosage: 3 CAPSULES.
     Route: 048
     Dates: start: 20150420

REACTIONS (6)
  - Constipation [Unknown]
  - Dyspepsia [Unknown]
  - Dizziness [Unknown]
  - Fall [Unknown]
  - Hot flush [Unknown]
  - Gastrooesophageal reflux disease [Unknown]
